FAERS Safety Report 18683868 (Version 1)
Quarter: 2020Q4

REPORT INFORMATION
  Report Type: Spontaneous
  Country: IT (occurrence: IT)
  Receive Date: 20201230
  Receipt Date: 20201230
  Transmission Date: 20210114
  Serious: Yes (Death, Hospitalization)
  Sender: FDA-Public Use
  Company Number: IT-MYLANLABS-2020M1105732

PATIENT
  Age: 65 Year
  Sex: Male

DRUGS (9)
  1. CYCLOPHOSPHAMIDE. [Suspect]
     Active Substance: CYCLOPHOSPHAMIDE
     Indication: DIFFUSE LARGE B-CELL LYMPHOMA STAGE IV
     Dosage: AS A PART OF R-CHOP REGIMEN; 8 COURSES
     Route: 065
  2. METHOTREXATE. [Suspect]
     Active Substance: METHOTREXATE
     Indication: DIFFUSE LARGE B-CELL LYMPHOMA STAGE IV
     Dosage: INTRATHECAL METHOTREXATE
     Route: 037
  3. RITUXIMAB. [Suspect]
     Active Substance: RITUXIMAB
     Indication: DIFFUSE LARGE B-CELL LYMPHOMA STAGE IV
     Dosage: AS A PART OF R-CHOP REGIMEN; 8 COURSES
     Route: 065
  4. DOXORUBICIN [Suspect]
     Active Substance: DOXORUBICIN
     Indication: DIFFUSE LARGE B-CELL LYMPHOMA STAGE IV
     Dosage: AS APART OF R-CHOP REGIMEN; 8 COURSES
     Route: 065
  5. CYTARABINE. [Suspect]
     Active Substance: CYTARABINE
     Indication: DIFFUSE LARGE B-CELL LYMPHOMA STAGE IV
     Dosage: AS A PART OF DHAP REGIMEN; 2 COURSES
     Route: 065
  6. DEXAMETHASONE. [Suspect]
     Active Substance: DEXAMETHASONE
     Indication: DIFFUSE LARGE B-CELL LYMPHOMA STAGE IV
     Dosage: AS A PART OF DHAP REGIMEN; 2 COURSES; HE AGAIN RECEIVED IT ALONG WITH INTRATHECAL METHOTREXATE
     Route: 065
  7. CISPLATIN. [Suspect]
     Active Substance: CISPLATIN
     Indication: DIFFUSE LARGE B-CELL LYMPHOMA STAGE IV
     Dosage: AS A PART OF DHAP REGIMEN; 2 COURSES
     Route: 065
  8. PREDNISONE. [Suspect]
     Active Substance: PREDNISONE
     Indication: DIFFUSE LARGE B-CELL LYMPHOMA STAGE IV
     Dosage: AS A PART OF R-CHOP REGIMEN; 8 COURSES
     Route: 065
  9. VINCRISTINE [Suspect]
     Active Substance: VINCRISTINE
     Indication: DIFFUSE LARGE B-CELL LYMPHOMA STAGE IV
     Dosage: AS A PART OF R-CHOP REGIMEN; 8 COURSES
     Route: 065

REACTIONS (6)
  - Hypothalamic pituitary adrenal axis suppression [Unknown]
  - Cytomegalovirus infection [Fatal]
  - Pneumonia cytomegaloviral [Fatal]
  - Hyperglycaemia [Unknown]
  - Polyuria [Unknown]
  - Hypotension [Unknown]
